FAERS Safety Report 19876812 (Version 1)
Quarter: 2021Q3

REPORT INFORMATION
  Report Type: Spontaneous
  Country: DE (occurrence: DE)
  Receive Date: 20210924
  Receipt Date: 20210924
  Transmission Date: 20211014
  Serious: Yes (Congenital Anomaly, Other)
  Sender: FDA-Public Use
  Company Number: DE-TEVA-2021-DE-1955972

PATIENT
  Age: 1 Day
  Sex: Female

DRUGS (2)
  1. PAROXETIN [Suspect]
     Active Substance: PAROXETINE HYDROCHLORIDE
     Indication: DEPRESSION
     Dosage: 30 [MG / D (UP TO 20 MG / D)] / AFTER GW 20 DOSE REDUCTION TO 20 MG DAILY , ADDITIONAL INFO : 0. ? 3
     Route: 064
     Dates: start: 20191229, end: 20200928
  2. INFLIXIMAB [Suspect]
     Active Substance: INFLIXIMAB
     Indication: CROHN^S DISEASE
     Dosage: 300 [MG/10WK ] , UNIT DOSE : 300 MG , ADDITIONAL INFO : 0. ? 32. GESTATIONAL WEEK
     Route: 064

REACTIONS (4)
  - Small for dates baby [Unknown]
  - Marcus Gunn syndrome [Unknown]
  - Foetal exposure during pregnancy [Unknown]
  - Eyelid ptosis congenital [Not Recovered/Not Resolved]

NARRATIVE: CASE EVENT DATE: 20191229
